FAERS Safety Report 4642472-3 (Version None)
Quarter: 2005Q2

REPORT INFORMATION
  Report Type: 
  Country: None (occurrence: None)
  Receive Date: 20050422
  Receipt Date: 20050418
  Transmission Date: 20051028
  Serious: Yes (Hospitalization)
  Sender: FDA-Public Use
  Company Number: FR-ROCHE-402266

PATIENT
  Age: 31 Year
  Sex: Male
  Weight: 64 kg

DRUGS (12)
  1. RIVOTRIL [Suspect]
     Indication: DRUG USE FOR UNKNOWN INDICATION
     Route: 048
     Dates: start: 20041117, end: 20050110
  2. XANAX [Suspect]
     Indication: DRUG USE FOR UNKNOWN INDICATION
     Route: 048
     Dates: start: 20041116, end: 20041116
  3. LEPONEX [Suspect]
     Indication: DRUG USE FOR UNKNOWN INDICATION
     Route: 048
     Dates: start: 20041117, end: 20041120
  4. LEPONEX [Suspect]
     Dosage: DOSE WAS  REPORTED TO HAVE BEEN PROGRESSIVELY INCREASED FROM 100 MG PER DAY FROM 20 NOVEMBER 2004 T+
     Route: 048
     Dates: start: 20041120, end: 20041220
  5. LEPONEX [Suspect]
     Dosage: STOPPED DUE TO FLU (FEVER UP TO 38 DEGREES C)
     Route: 048
     Dates: start: 20050103, end: 20050218
  6. FRAXIPARINE [Suspect]
     Indication: DRUG USE FOR UNKNOWN INDICATION
     Dosage: 1 DOSE PER DAY.
     Route: 058
     Dates: start: 20041117, end: 20041119
  7. MOTILIUM [Suspect]
     Indication: DRUG USE FOR UNKNOWN INDICATION
     Route: 048
     Dates: start: 20041117, end: 20041125
  8. LANZOR [Suspect]
     Indication: DRUG USE FOR UNKNOWN INDICATION
     Dosage: 1 DOSE PER DAY.
     Route: 048
     Dates: start: 20041117, end: 20041125
  9. GAVISCON [Concomitant]
     Dosage: 3 DOSES PER DAY.
     Dates: start: 20041117, end: 20041125
  10. TRANXENE [Concomitant]
     Indication: AGITATION
     Dosage: GIVEN IN CASE OF AGITATION.
     Route: 030
  11. FORLAX [Concomitant]
     Dosage: 2 DOSES PER DAY.
     Dates: start: 20041125, end: 20041125
  12. DUOFILM [Concomitant]
     Dates: start: 20050105, end: 20050115

REACTIONS (1)
  - LEUKOCYTOSIS [None]
